FAERS Safety Report 5864479-0 (Version None)
Quarter: 2008Q3

REPORT INFORMATION
  Report Type: 
  Country: None (occurrence: None)
  Receive Date: 20080829
  Receipt Date: 20080724
  Transmission Date: 20090109
  Serious: No
  Sender: FDA-Public Use
  Company Number: US-ABBOTT-08P-163-0460778-00

PATIENT
  Sex: Female
  Weight: 88.076 kg

DRUGS (3)
  1. SIMCOR [Suspect]
     Indication: BLOOD CHOLESTEROL ABNORMAL
     Dosage: 500/20 MG AT BEDTIME
     Dates: start: 20080501, end: 20080703
  2. ALPRAZOLAM [Concomitant]
     Indication: HYPERTENSION
     Dosage: 5/40 MG DAILY
     Route: 048
     Dates: start: 20080501
  3. POTASSIUM CHLORIDE [Concomitant]
     Indication: DRUG USE FOR UNKNOWN INDICATION

REACTIONS (8)
  - ABDOMINAL PAIN [None]
  - ARTHRALGIA [None]
  - HOT FLUSH [None]
  - INCREASED TENDENCY TO BRUISE [None]
  - LIMB DISCOMFORT [None]
  - MUSCULOSKELETAL DISCOMFORT [None]
  - OEDEMA PERIPHERAL [None]
  - TENDERNESS [None]
